FAERS Safety Report 6965133-4 (Version None)
Quarter: 2010Q3

REPORT INFORMATION
  Report Type: 
  Country: None (occurrence: None)
  Receive Date: 20100903
  Receipt Date: 20100825
  Transmission Date: 20110219
  Serious: Yes (Other)
  Sender: FDA-Public Use
  Company Number: US-PFIZER INC-2010107747

PATIENT
  Sex: Female
  Weight: 61.23 kg

DRUGS (6)
  1. LYRICA [Suspect]
     Indication: AMYOTROPHIC LATERAL SCLEROSIS
     Dosage: 25 MG, 3X/DAY
     Dates: start: 20100801
  2. GAMMA-AMINOBUTYRIC ACID [Interacting]
     Indication: AMYOTROPHIC LATERAL SCLEROSIS
     Dosage: 700 MG, 1X/DAY
  3. GLYCINE 1.5% [Interacting]
     Indication: AMYOTROPHIC LATERAL SCLEROSIS
     Dosage: 1000 MG, 1X/DAY
  4. INOSITOL [Interacting]
     Indication: MUSCLE RIGIDITY
     Dosage: UNK
  5. BUSPAR [Interacting]
     Indication: ANXIETY
     Dosage: 10 MG, 1X/DAY
  6. ALPHA-KETOGLUTARIC ACID [Concomitant]

REACTIONS (3)
  - APHASIA [None]
  - DRUG INTERACTION [None]
  - SEDATION [None]
